FAERS Safety Report 19179331 (Version 1)
Quarter: 2021Q2

REPORT INFORMATION
  Report Type: Spontaneous
  Country: US (occurrence: US)
  Receive Date: 20210422
  Receipt Date: 20210422
  Transmission Date: 20210717
  Serious: Yes (Disabling)
  Sender: FDA-Public Use
  Company Number: None

PATIENT
  Age: 62 Year
  Weight: 68.04 kg

DRUGS (9)
  1. METOPROLOL. [Concomitant]
     Active Substance: METOPROLOL
  2. MELATONIN [Concomitant]
     Active Substance: MELATONIN
  3. LIPITOR [Concomitant]
     Active Substance: ATORVASTATIN CALCIUM
  4. CLOPIDOGREL [Suspect]
     Active Substance: CLOPIDOGREL BISULFATE
     Indication: CORONARY ARTERIAL STENT INSERTION
     Dosage: ?          QUANTITY:1 PER DAY;?
     Route: 048
     Dates: start: 20210205, end: 20210228
  5. LISINOPRIL. [Concomitant]
     Active Substance: LISINOPRIL
  6. FISH OIL [Concomitant]
     Active Substance: FISH OIL
  7. ASPIRIN. [Concomitant]
     Active Substance: ASPIRIN
  8. SIDENEFIL [Concomitant]
  9. CPAP [Concomitant]
     Active Substance: DEVICE

REACTIONS (7)
  - Peripheral swelling [None]
  - Movement disorder [None]
  - Therapy change [None]
  - Impaired work ability [None]
  - Rash pruritic [None]
  - Arthralgia [None]
  - Inflammatory marker increased [None]

NARRATIVE: CASE EVENT DATE: 20210227
